FAERS Safety Report 7757771-6 (Version None)
Quarter: 2011Q3

REPORT INFORMATION
  Report Type: 
  Country: None (occurrence: None)
  Receive Date: 20110918
  Receipt Date: 20110907
  Transmission Date: 20111222
  Serious: Yes (Hospitalization)
  Sender: FDA-Public Use
  Company Number: US-ASTRAZENECA-2011SE53656

PATIENT
  Age: 57 Year
  Sex: Male

DRUGS (2)
  1. VIMOVO [Suspect]
     Indication: OSTEOARTHRITIS
     Route: 048
  2. CELEXA [Concomitant]

REACTIONS (1)
  - LOWER GASTROINTESTINAL HAEMORRHAGE [None]
